FAERS Safety Report 9451248 (Version 1)
Quarter: 2013Q3

REPORT INFORMATION
  Report Type: Spontaneous
  Country: BR (occurrence: BR)
  Receive Date: 20130809
  Receipt Date: 20130809
  Transmission Date: 20140515
  Serious: Yes (Other)
  Sender: FDA-Public Use
  Company Number: BR-ASTRAZENECA-2013SE60876

PATIENT
  Age: 694 Month
  Sex: Female
  Weight: 53 kg

DRUGS (3)
  1. OMEPRAZOLE [Suspect]
     Indication: GASTRITIS EROSIVE
     Route: 048
     Dates: start: 201304, end: 201304
  2. OMEPRAZOLE [Suspect]
     Indication: GASTRITIS EROSIVE
     Route: 048
     Dates: start: 20130721, end: 20130722
  3. CLONAZEPAM [Concomitant]
     Dates: start: 2005

REACTIONS (6)
  - Haematemesis [Recovered/Resolved]
  - Headache [Recovered/Resolved]
  - Vomiting [Recovered/Resolved]
  - Dizziness [Recovered/Resolved]
  - Abdominal pain upper [Unknown]
  - Drug dose omission [Unknown]
